FAERS Safety Report 15937145 (Version 1)
Quarter: 2019Q1

REPORT INFORMATION
  Report Type: Spontaneous
  Country: IT (occurrence: IT)
  Receive Date: 20190208
  Receipt Date: 20190208
  Transmission Date: 20190417
  Serious: Yes (Other)
  Sender: FDA-Public Use
  Company Number: IT-BAYER-2019-024117

PATIENT
  Age: 33 Year
  Sex: Female

DRUGS (3)
  1. ASPIRINETTA 100 MG [Suspect]
     Active Substance: ASPIRIN
     Dosage: 100 MG, QD
  2. HEPARIN [Interacting]
     Active Substance: HEPARIN SODIUM
     Dosage: 100 IU/KG, BID
  3. HYDROXYCHLOROQUINE [Concomitant]
     Active Substance: HYDROXYCHLOROQUINE
     Dosage: 300 MG, QD

REACTIONS (7)
  - Maternal exposure during pregnancy [None]
  - Premature delivery [None]
  - Antiphospholipid syndrome [Recovering/Resolving]
  - Contraindicated product administered [None]
  - Product monitoring error [None]
  - Vulval haemorrhage [None]
  - Labelled drug-drug interaction medication error [None]
